FAERS Safety Report 7142745-9 (Version None)
Quarter: 2010Q4

REPORT INFORMATION
  Report Type: 
  Country: None (occurrence: None)
  Receive Date: 20101207
  Receipt Date: 20101126
  Transmission Date: 20110411
  Serious: Yes (Hospitalization)
  Sender: FDA-Public Use
  Company Number: PHHY2010CL68582

PATIENT
  Age: 57 Year
  Sex: Female

DRUGS (3)
  1. ACLASTA [Suspect]
     Dosage: 5 MG
  2. GLUCOSAMINE [Concomitant]
  3. CALCIUM [Concomitant]

REACTIONS (1)
  - HIP SURGERY [None]
